FAERS Safety Report 18952331 (Version 1)
Quarter: 2021Q1

REPORT INFORMATION
  Report Type: Report from Study
  Country: None (occurrence: US)
  Receive Date: 20210301
  Receipt Date: 20210301
  Transmission Date: 20210420
  Serious: Yes (Other)
  Sender: FDA-Public Use
  Company Number: US-ABBVIE-20K-163-3575473-00

PATIENT
  Age: 54 Year
  Sex: Male
  Weight: 97.61 kg

DRUGS (18)
  1. HUMIRA [Suspect]
     Active Substance: ADALIMUMAB
     Indication: PSORIATIC ARTHROPATHY
     Route: 058
     Dates: start: 2016, end: 202011
  2. SYMBICORT [Concomitant]
     Active Substance: BUDESONIDE\FORMOTEROL FUMARATE DIHYDRATE
     Indication: ASTHMA
  3. PRAZOSIN. [Concomitant]
     Active Substance: PRAZOSIN
     Indication: NIGHTMARE
  4. CREON [Concomitant]
     Active Substance: PANCRELIPASE AMYLASE\PANCRELIPASE LIPASE\PANCRELIPASE PROTEASE
     Indication: PANCREATIC DISORDER
  5. PROPANOLOL [Concomitant]
     Active Substance: PROPRANOLOL HYDROCHLORIDE
     Indication: TREMOR
  6. GABAPENTINE [Concomitant]
     Active Substance: GABAPENTIN
     Indication: EMOTIONAL DISTRESS
  7. OMEPRAZOLE. [Concomitant]
     Active Substance: OMEPRAZOLE
     Indication: PANCREATIC DISORDER
  8. TIZANIDINE. [Concomitant]
     Active Substance: TIZANIDINE
     Indication: PRODUCT USED FOR UNKNOWN INDICATION
  9. CLOBEX [Concomitant]
     Active Substance: CLOBETASOL PROPIONATE
     Indication: PRODUCT USED FOR UNKNOWN INDICATION
  10. PROCTOL [Concomitant]
     Indication: PRODUCT USED FOR UNKNOWN INDICATION
  11. PROSPERIN [Concomitant]
     Indication: ANXIETY
  12. CODEINE [Concomitant]
     Active Substance: CODEINE
     Indication: PAIN
  13. ATORVASTATIN [Concomitant]
     Active Substance: ATORVASTATIN
     Indication: BLOOD CHOLESTEROL
  14. FLUTICASONE. [Concomitant]
     Active Substance: FLUTICASONE
     Indication: PRODUCT USED FOR UNKNOWN INDICATION
  15. TRAZODONE [Concomitant]
     Active Substance: TRAZODONE HYDROCHLORIDE
     Indication: SLEEP DISORDER
  16. VITAMIN D3 [Concomitant]
     Active Substance: CHOLECALCIFEROL
     Indication: SUPPLEMENTATION THERAPY
  17. TOPIRAMATE. [Concomitant]
     Active Substance: TOPIRAMATE
     Indication: PAIN PROPHYLAXIS
  18. ALBUTEROL. [Concomitant]
     Active Substance: ALBUTEROL
     Indication: ASTHMA

REACTIONS (12)
  - Pain in extremity [Recovering/Resolving]
  - Blister [Unknown]
  - Intervertebral disc protrusion [Recovering/Resolving]
  - Neck pain [Recovering/Resolving]
  - Exposure to toxic agent [Not Recovered/Not Resolved]
  - Dermatitis [Not Recovered/Not Resolved]
  - Rash macular [Unknown]
  - Basal cell carcinoma [Not Recovered/Not Resolved]
  - Skin exfoliation [Not Recovered/Not Resolved]
  - Neck surgery [Recovering/Resolving]
  - Skin ulcer [Not Recovered/Not Resolved]
  - Neuropathy peripheral [Not Recovered/Not Resolved]

NARRATIVE: CASE EVENT DATE: 2020
